FAERS Safety Report 10520700 (Version 2)
Quarter: 2014Q4

REPORT INFORMATION
  Report Type: Spontaneous
  Country: GB (occurrence: GB)
  Receive Date: 20141015
  Receipt Date: 20141024
  Transmission Date: 20150528
  Serious: Yes (Death, Other)
  Sender: FDA-Public Use
  Company Number: GB-ABBVIE-14P-167-1295928-00

PATIENT
  Sex: Female

DRUGS (3)
  1. DEPAKOTE [Suspect]
     Active Substance: DIVALPROEX SODIUM
     Indication: IMPULSIVE BEHAVIOUR
     Route: 065
     Dates: start: 200703, end: 2008
  2. DIAZEPAM. [Suspect]
     Active Substance: DIAZEPAM
     Indication: PRODUCT USED FOR UNKNOWN INDICATION
     Route: 065
  3. SERTRALINE HYDROCHLORIDE. [Suspect]
     Active Substance: SERTRALINE HYDROCHLORIDE
     Indication: PRODUCT USED FOR UNKNOWN INDICATION
     Route: 065

REACTIONS (10)
  - Post-traumatic stress disorder [Unknown]
  - Social avoidant behaviour [Unknown]
  - Personality disorder [Unknown]
  - Overdose [Unknown]
  - Malaise [Unknown]
  - Confusional state [Unknown]
  - Impulsive behaviour [Unknown]
  - Intentional self-injury [Unknown]
  - Completed suicide [Fatal]
  - Mood swings [Unknown]

NARRATIVE: CASE EVENT DATE: 20080302
